FAERS Safety Report 8162963-0 (Version None)
Quarter: 2012Q1

REPORT INFORMATION
  Report Type: 
  Country: None (occurrence: None)
  Receive Date: 20120224
  Receipt Date: 20120217
  Transmission Date: 20120608
  Serious: Yes (Death)
  Sender: FDA-Public Use
  Company Number: CN-BAYER-2012-010905

PATIENT
  Age: 71 Year
  Sex: Male
  Weight: 66 kg

DRUGS (1)
  1. ULTRAVIST 150 [Suspect]
     Indication: COMPUTERISED TOMOGRAM
     Dosage: 100 ML, ONCE
     Dates: start: 20120202, end: 20120202

REACTIONS (12)
  - PALPITATIONS [None]
  - DYSPNOEA [None]
  - DEPRESSED LEVEL OF CONSCIOUSNESS [None]
  - PULSE PRESSURE DECREASED [None]
  - MYDRIASIS [None]
  - PALLOR [None]
  - BLOOD PRESSURE IMMEASURABLE [None]
  - PUPILLARY REFLEX IMPAIRED [None]
  - PULSE ABSENT [None]
  - CHEST DISCOMFORT [None]
  - CARDIAC ARREST [None]
  - MALAISE [None]
